FAERS Safety Report 21654405 (Version 1)
Quarter: 2022Q4

REPORT INFORMATION
  Report Type: Spontaneous
  Country: US (occurrence: None)
  Receive Date: 20221129
  Receipt Date: 20221129
  Transmission Date: 20230113
  Serious: No
  Sender: FDA-Public Use
  Company Number: 2022A374898

PATIENT
  Age: 17691 Day
  Sex: Male
  Weight: 147.9 kg

DRUGS (1)
  1. SYMBICORT [Suspect]
     Active Substance: BUDESONIDE\FORMOTEROL FUMARATE DIHYDRATE
     Indication: Asthma
     Dosage: 160/4.5 MCG, 2 INHALATIONS 2 TIMES A DAY
     Route: 055

REACTIONS (9)
  - Condition aggravated [Unknown]
  - Muscle spasms [Not Recovered/Not Resolved]
  - Respiratory tract irritation [Not Recovered/Not Resolved]
  - Productive cough [Not Recovered/Not Resolved]
  - Product dose omission issue [Unknown]
  - Wrong technique in device usage process [Unknown]
  - Device use issue [Unknown]
  - Incorrect dose administered by device [Unknown]
  - Device delivery system issue [Unknown]

NARRATIVE: CASE EVENT DATE: 20221110
